FAERS Safety Report 5955722-8 (Version None)
Quarter: 2008Q4

REPORT INFORMATION
  Report Type: 
  Country: None (occurrence: None)
  Receive Date: 20081112
  Receipt Date: 20081031
  Transmission Date: 20090506
  Serious: Yes (Other)
  Sender: FDA-Public Use
  Company Number: 2008JP004621

PATIENT
  Age: 9 Year
  Sex: Male
  Weight: 40 kg

DRUGS (18)
  1. FUNGUARD(MICAFUNGIN) INJECTION [Suspect]
     Indication: INFECTION PROPHYLAXIS
     Dosage: 50 MG, UID/QD, IV DRIP
     Route: 041
     Dates: start: 20080111, end: 20080125
  2. PROGRAF [Suspect]
     Indication: BONE MARROW TRANSPLANT
     Dosage: 0.02 MG/KG,
     Dates: start: 20080115, end: 20080311
  3. METHOTREXATE [Suspect]
     Indication: BONE MARROW TRANSPLANT
     Dosage: 7.5 MG/M2,
     Dates: start: 20080117, end: 20080117
  4. METHOTREXATE [Suspect]
     Indication: BONE MARROW TRANSPLANT
     Dosage: 7.5 MG/M2,
     Dates: start: 20080119, end: 20080119
  5. METHOTREXATE [Suspect]
     Indication: BONE MARROW TRANSPLANT
     Dosage: 7.5 MG/M2,
     Dates: start: 20080122, end: 20080122
  6. ALKERAN [Concomitant]
  7. FLUDARA [Concomitant]
  8. LASTET (ETOPOSIDE) INJECTION [Concomitant]
  9. PREDNISOLONE [Concomitant]
  10. GASTER INJECTION [Concomitant]
  11. ZOVIRAX [Concomitant]
  12. PERDIPINE (NICARDIPINE) INJECTION [Concomitant]
  13. FINIBAX (DORIPENEM) INJECTION [Concomitant]
  14. MINOPEN (MINOCYCLINE HYDROCHLORIDE) INJECTION [Concomitant]
  15. BACCIDAL (NORFLOXACIN) PER ORAL NOS [Concomitant]
  16. DENOSINE (GANCICLOVIR) INJECTION [Concomitant]
  17. VANCOMYCIN [Concomitant]
  18. NEUPOGEN [Concomitant]

REACTIONS (8)
  - ALANINE AMINOTRANSFERASE INCREASED [None]
  - ASPARTATE AMINOTRANSFERASE INCREASED [None]
  - BACTERIAL INFECTION [None]
  - CYTOKINE STORM [None]
  - HYPERTENSION [None]
  - HYPERTHERMIA [None]
  - NEUTROPENIA [None]
  - STEM CELL TRANSPLANT [None]
